FAERS Safety Report 11090079 (Version 1)
Quarter: 2015Q2

REPORT INFORMATION
  Report Type: Spontaneous
  Country: US (occurrence: US)
  Receive Date: 20150505
  Receipt Date: 20150505
  Transmission Date: 20150821
  Serious: Yes (Hospitalization, Other)
  Sender: FDA-Public Use
  Company Number: US-AUROBINDO-AUR-APU-2015-03318

PATIENT

DRUGS (2)
  1. SERTRALINE [Suspect]
     Active Substance: SERTRALINE HYDROCHLORIDE
     Dosage: 100 MG, UNK
     Route: 065
     Dates: start: 20131220
  2. SERTRALINE [Suspect]
     Active Substance: SERTRALINE HYDROCHLORIDE
     Indication: PANIC ATTACK
     Dosage: UNK
     Route: 065
     Dates: start: 20131129

REACTIONS (8)
  - Product substitution issue [Recovering/Resolving]
  - Anxiety [Recovering/Resolving]
  - Panic attack [Recovering/Resolving]
  - Drug ineffective [Recovering/Resolving]
  - Feeling abnormal [Recovering/Resolving]
  - Product quality issue [Recovering/Resolving]
  - Agitation [Recovering/Resolving]
  - Abdominal distension [Recovering/Resolving]
